FAERS Safety Report 9527820 (Version 1)
Quarter: 2013Q3

REPORT INFORMATION
  Report Type: Spontaneous
  Country: JP (occurrence: None)
  Receive Date: 20130913
  Receipt Date: 20130913
  Transmission Date: 20140515
  Serious: Yes (Death)
  Sender: FDA-Public Use
  Company Number: FK201304150

PATIENT
  Age: 95 Year
  Sex: Male

DRUGS (8)
  1. METHYLPREDNISOLONE [Suspect]
     Indication: PNEUMONIA
  2. CEFTRIAXON [Concomitant]
     Indication: PNEUMONIA
  3. PREDNISOLONE (PREDNISOLONE) [Suspect]
     Indication: PNEUMONIA
  4. COTRIMAZOLE [Concomitant]
  5. MINOCYCLINE (MINPCYCLINE) [Concomitant]
  6. LIPOSOMAL AMPHOTERCIN B (AMPHOTERICIN B, LIPOSOME) [Concomitant]
  7. CORTIMOXAZOLE (BACTRIM/00086101) [Concomitant]
  8. LEVOFLOXACIN [Concomitant]

REACTIONS (4)
  - Bronchopulmonary aspergillosis [None]
  - Pneumocystis jirovecii pneumonia [None]
  - Hypocomplementaemia [None]
  - Hypoalbuminaemia [None]
